FAERS Safety Report 6700493-0 (Version None)
Quarter: 2010Q2

REPORT INFORMATION
  Report Type: 
  Country: None (occurrence: None)
  Receive Date: 20100428
  Receipt Date: 20100423
  Transmission Date: 20101027
  Serious: Yes (Hospitalization)
  Sender: FDA-Public Use
  Company Number: A0778080A

PATIENT
  Age: 71 Year
  Sex: Male
  Weight: 120.5 kg

DRUGS (10)
  1. AVANDIA [Suspect]
     Dosage: 4MG PER DAY
     Route: 048
     Dates: start: 20050301
  2. GLIPIZIDE [Concomitant]
  3. NEURONTIN [Concomitant]
  4. SINGULAIR [Concomitant]
  5. UROXATRAL [Concomitant]
  6. GLUCOTROL [Concomitant]
  7. ULTRAM [Concomitant]
  8. COMBIVENT [Concomitant]
  9. DIOVAN [Concomitant]
  10. ADVAIR DISKUS 100/50 [Concomitant]

REACTIONS (5)
  - ACUTE CORONARY SYNDROME [None]
  - CARDIAC FAILURE CONGESTIVE [None]
  - CONGESTIVE CARDIOMYOPATHY [None]
  - CORONARY ARTERY DISEASE [None]
  - ISCHAEMIC CARDIOMYOPATHY [None]
